FAERS Safety Report 4773806-7 (Version None)
Quarter: 2005Q3

REPORT INFORMATION
  Report Type: 
  Country: None (occurrence: None)
  Receive Date: 20050920
  Receipt Date: 20050915
  Transmission Date: 20060218
  Serious: Yes (Hospitalization)
  Sender: FDA-Public Use
  Company Number: US-GLAXOSMITHKLINE-A0574415A

PATIENT
  Age: 61 Year
  Sex: Female

DRUGS (9)
  1. FLOVENT [Suspect]
     Indication: ASTHMA
     Dosage: 220MCG TWICE PER DAY
     Route: 055
     Dates: start: 20050701, end: 20050810
  2. CIPRO [Suspect]
     Indication: DIVERTICULITIS
     Route: 042
  3. ADVAIR DISKUS 100/50 [Suspect]
     Indication: ASTHMA
     Dosage: 1PUFF TWICE PER DAY
     Route: 055
     Dates: start: 20050811
  4. FOSAMAX [Concomitant]
  5. SINGULAIR [Concomitant]
  6. ALBUTEROL [Concomitant]
  7. CEFEPIME [Concomitant]
  8. ZITHROMAX [Concomitant]
  9. PREDNISONE [Concomitant]

REACTIONS (9)
  - ABSCESS INTESTINAL [None]
  - ASTHMA [None]
  - CHEST DISCOMFORT [None]
  - DIVERTICULITIS [None]
  - DYSPHONIA [None]
  - INJECTION SITE REACTION [None]
  - PYREXIA [None]
  - RASH [None]
  - URTICARIA [None]
